FAERS Safety Report 6083471-7 (Version None)
Quarter: 2009Q1

REPORT INFORMATION
  Report Type: 
  Country: None (occurrence: None)
  Receive Date: 20090213
  Receipt Date: 20090213
  Transmission Date: 20090719
  Serious: No
  Sender: FDA-Public Use
  Company Number: None

PATIENT
  Sex: Male
  Weight: 59.09 kg

DRUGS (4)
  1. BACTRIM DS [Suspect]
     Dosage: 160-800MG ORAL
     Route: 048
     Dates: start: 20090206, end: 20090212
  2. AUGMENTIN [Concomitant]
  3. MVI (MULTIVITAMINS) [Concomitant]
  4. VIT C (ASCORBIC ACID) [Concomitant]

REACTIONS (1)
  - HYPOAESTHESIA ORAL [None]
